FAERS Safety Report 22078297 (Version 1)
Quarter: 2023Q1

REPORT INFORMATION
  Report Type: Spontaneous
  Country: NL (occurrence: NL)
  Receive Date: 20230309
  Receipt Date: 20230309
  Transmission Date: 20230417
  Serious: Yes (Other)
  Sender: FDA-Public Use
  Company Number: None

PATIENT
  Sex: Female
  Weight: 80 kg

DRUGS (4)
  1. DEPO-PROVERA [Suspect]
     Active Substance: MEDROXYPROGESTERONE ACETATE
     Indication: Contraception
     Dosage: EVERY 12 WEEKS
     Dates: start: 19901101, end: 20220815
  2. RISPERIDONE [Concomitant]
     Active Substance: RISPERIDONE
     Dosage: 3 MG
  3. QUETIAPINE [Concomitant]
     Active Substance: QUETIAPINE
     Dosage: 100 MG
  4. CITALOPRAM [Concomitant]
     Active Substance: CITALOPRAM HYDROBROMIDE
     Dosage: 20 MG

REACTIONS (1)
  - Deep vein thrombosis [Recovered/Resolved]
